FAERS Safety Report 7094063-5 (Version None)
Quarter: 2010Q4

REPORT INFORMATION
  Report Type: 
  Country: None (occurrence: None)
  Receive Date: 20101109
  Receipt Date: 20101109
  Transmission Date: 20110411
  Serious: No
  Sender: FDA-Public Use
  Company Number: None

PATIENT
  Age: 50 Year
  Sex: Female
  Weight: 63.5036 kg

DRUGS (2)
  1. ZICAM ??? ??? [Suspect]
     Indication: INFLUENZA
     Dosage: 1 SWAB ONLY USED ONCE
     Dates: start: 20101105, end: 20101105
  2. ZICAM ??? ??? [Suspect]
     Indication: NASOPHARYNGITIS
     Dosage: 1 SWAB ONLY USED ONCE
     Dates: start: 20101105, end: 20101105

REACTIONS (1)
  - ANOSMIA [None]
